FAERS Safety Report 19495419 (Version 4)
Quarter: 2022Q2

REPORT INFORMATION
  Report Type: Report from Study
  Country: US (occurrence: US)
  Receive Date: 20210706
  Receipt Date: 20220614
  Transmission Date: 20220721
  Serious: No
  Sender: FDA-Public Use
  Company Number: US-NOVARTISTESTPH-NVSC2021US150579

PATIENT
  Sex: Female

DRUGS (1)
  1. ENTRESTO [Suspect]
     Active Substance: SACUBITRIL\VALSARTAN
     Indication: Product used for unknown indication
     Dosage: 50 MG  24/26MG)
     Route: 065

REACTIONS (6)
  - Weight increased [Unknown]
  - Dehydration [Unknown]
  - Dyspnoea exertional [Unknown]
  - Memory impairment [Unknown]
  - Decreased activity [Unknown]
  - Hypotension [Unknown]
